FAERS Safety Report 5070370-2 (Version None)
Quarter: 2006Q3

REPORT INFORMATION
  Report Type: 
  Country: None (occurrence: None)
  Receive Date: 20060731
  Receipt Date: 20060719
  Transmission Date: 20061208
  Serious: Yes (Other)
  Sender: FDA-Public Use
  Company Number: 2006079820

PATIENT
  Age: 61 Year
  Sex: Female

DRUGS (3)
  1. NORVASC [Suspect]
     Indication: HYPERTENSION
     Dosage: 5 MG, ORAL
     Route: 048
     Dates: start: 20060616, end: 20060619
  2. REBETOL [Concomitant]
  3. PEG-INTRON [Concomitant]

REACTIONS (2)
  - LOSS OF CONSCIOUSNESS [None]
  - SOMNOLENCE [None]
